FAERS Safety Report 17431697 (Version 1)
Quarter: 2020Q1

REPORT INFORMATION
  Report Type: Spontaneous
  Country: IT (occurrence: IT)
  Receive Date: 20200218
  Receipt Date: 20200218
  Transmission Date: 20200409
  Serious: Yes (Other)
  Sender: FDA-Public Use
  Company Number: IT-GILEAD-2020-0448439

PATIENT
  Age: 52 Year
  Sex: Male

DRUGS (4)
  1. EVEROLIMUS. [Concomitant]
     Active Substance: EVEROLIMUS
  2. TACROLIMUS. [Concomitant]
     Active Substance: TACROLIMUS
  3. VOSEVI [Suspect]
     Active Substance: SOFOSBUVIR\VELPATASVIR\VOXILAPREVIR
     Indication: CHRONIC HEPATITIS C
     Dosage: 1 DOSAGE FORM, QD FOR 12 WEEKS
     Route: 065
     Dates: start: 20190902
  4. LAMIVUDINE. [Concomitant]
     Active Substance: LAMIVUDINE

REACTIONS (3)
  - Hepatocellular injury [Unknown]
  - Hepatitis C [Not Recovered/Not Resolved]
  - Virologic failure [Not Recovered/Not Resolved]

NARRATIVE: CASE EVENT DATE: 20200121
